FAERS Safety Report 25533062 (Version 1)
Quarter: 2025Q3

REPORT INFORMATION
  Report Type: Spontaneous
  Country: ZA (occurrence: ZA)
  Receive Date: 20250709
  Receipt Date: 20250709
  Transmission Date: 20251021
  Serious: Yes (Life-Threatening, Hospitalization, Other)
  Sender: RANBAXY
  Company Number: ZA-SUN PHARMACEUTICAL INDUSTRIES INC-2025R1-515122

PATIENT
  Age: 28 Year
  Sex: Male

DRUGS (4)
  1. LITHIUM [Suspect]
     Active Substance: LITHIUM
     Indication: Bipolar disorder
     Route: 065
  2. OLANZAPINE [Concomitant]
     Active Substance: OLANZAPINE
     Indication: Bipolar disorder
     Route: 065
  3. VALPROATE SODIUM [Concomitant]
     Active Substance: VALPROATE SODIUM
     Indication: Bipolar disorder
     Route: 065
  4. ORPHENADRINE [Concomitant]
     Active Substance: ORPHENADRINE
     Indication: Bipolar disorder
     Route: 065

REACTIONS (5)
  - Nephrogenic diabetes insipidus [Recovering/Resolving]
  - Renal failure [Recovering/Resolving]
  - Primary hypothyroidism [Recovering/Resolving]
  - Toxicity to various agents [Unknown]
  - Hyperkalaemia [Recovering/Resolving]
